FAERS Safety Report 15012097 (Version 1)
Quarter: 2018Q2

REPORT INFORMATION
  Report Type: Spontaneous
  Country: US (occurrence: US)
  Receive Date: 20180614
  Receipt Date: 20180614
  Transmission Date: 20180711
  Serious: Yes (Life-Threatening, Other)
  Sender: FDA-Public Use
  Company Number: PHEH2018US023192

PATIENT
  Age: 47 Year
  Sex: Female
  Weight: 61 kg

DRUGS (1)
  1. JADENU [Suspect]
     Active Substance: DEFERASIROX
     Indication: IRON OVERLOAD
     Dosage: 1080 MG, QD
     Route: 048
     Dates: start: 201508, end: 20180609

REACTIONS (9)
  - Alanine aminotransferase increased [Unknown]
  - Aggression [Unknown]
  - Confusional state [Unknown]
  - Nausea [Unknown]
  - Aspartate aminotransferase increased [Unknown]
  - Encephalopathy [Recovering/Resolving]
  - Hyperammonaemia [Recovering/Resolving]
  - Lactic acidosis [Unknown]
  - Headache [Unknown]

NARRATIVE: CASE EVENT DATE: 20180523
